FAERS Safety Report 23433001 (Version 4)
Quarter: 2025Q1

REPORT INFORMATION
  Report Type: Spontaneous
  Country: US (occurrence: US)
  Receive Date: 20240123
  Receipt Date: 20250103
  Transmission Date: 20250409
  Serious: No
  Sender: SANOFI AVENTIS
  Company Number: US-SA-SAC20240117000160

PATIENT
  Age: 61 Year
  Sex: Female

DRUGS (25)
  1. DUPIXENT [Suspect]
     Active Substance: DUPILUMAB
     Indication: Asthma
     Dosage: 300 MG, QOW
     Route: 058
     Dates: start: 20220805
  2. ALBUTEROL SULFATE [Concomitant]
     Active Substance: ALBUTEROL SULFATE
  3. ALPRAZOLAM [Concomitant]
     Active Substance: ALPRAZOLAM
  4. ATORVASTATIN [Concomitant]
     Active Substance: ATORVASTATIN
  5. AZELASTINE [Concomitant]
     Active Substance: AZELASTINE
  6. BUMETANIDE [Concomitant]
     Active Substance: BUMETANIDE
  7. FUROSEMIDE [Concomitant]
     Active Substance: FUROSEMIDE
  8. GABAPENTIN [Concomitant]
     Active Substance: GABAPENTIN
  9. ACETAMINOPHEN\HYDROCODONE [Concomitant]
     Active Substance: ACETAMINOPHEN\HYDROCODONE
  10. JARDIANCE [Concomitant]
     Active Substance: EMPAGLIFLOZIN
  11. LISINOPRIL [Concomitant]
     Active Substance: LISINOPRIL
  12. LOSARTAN POTASSIUM [Concomitant]
     Active Substance: LOSARTAN POTASSIUM
  13. PREDNISOLONE [Concomitant]
     Active Substance: PREDNISOLONE
  14. PREDNISONE [Concomitant]
     Active Substance: PREDNISONE
  15. ZAFIRLUKAST [Concomitant]
     Active Substance: ZAFIRLUKAST
  16. AZITHROMYCIN [Concomitant]
     Active Substance: AZITHROMYCIN
  17. DOXYCYCLINE HYCLATE [Concomitant]
     Active Substance: DOXYCYCLINE HYCLATE
  18. METHOCARBAMOL [Concomitant]
     Active Substance: METHOCARBAMOL
  19. METHYLPREDNISOLONE SODIUM SUCCINATE [Concomitant]
     Active Substance: METHYLPREDNISOLONE SODIUM SUCCINATE
  20. METOPROLOL SUCCINATE [Concomitant]
     Active Substance: METOPROLOL SUCCINATE
  21. GABAPENTIN [Concomitant]
     Active Substance: GABAPENTIN
  22. ACETAMINOPHEN\HYDROCODONE [Concomitant]
     Active Substance: ACETAMINOPHEN\HYDROCODONE
  23. LEVOTHYROXINE [Concomitant]
     Active Substance: LEVOTHYROXINE
  24. HYDROCORTISONE [Concomitant]
     Active Substance: HYDROCORTISONE
  25. PREDNISOLONE [Concomitant]
     Active Substance: PREDNISOLONE

REACTIONS (7)
  - Impaired quality of life [Not Recovered/Not Resolved]
  - Spinal disorder [Unknown]
  - Pruritus [Unknown]
  - Asthma [Not Recovered/Not Resolved]
  - Dyspnoea [Not Recovered/Not Resolved]
  - Drug ineffective [Not Recovered/Not Resolved]
  - Product dose omission in error [Unknown]
